FAERS Safety Report 4933049-0 (Version None)
Quarter: 2006Q1

REPORT INFORMATION
  Report Type: 
  Country: None (occurrence: None)
  Receive Date: 20060301
  Receipt Date: 20060214
  Transmission Date: 20060701
  Serious: Yes (Death)
  Sender: FDA-Public Use
  Company Number: 2006S1001352

PATIENT
  Age: 86 Year
  Sex: Male

DRUGS (3)
  1. CLOZAPINE [Suspect]
     Indication: HALLUCINATION
     Dosage: 12.5 MG;QOD;ORAL
     Route: 048
     Dates: start: 20040901, end: 20060101
  2. CLOZAPINE [Suspect]
     Indication: PARKINSON'S DISEASE
     Dosage: 12.5 MG;QOD;ORAL
     Route: 048
     Dates: start: 20040901, end: 20060101
  3. CLOZAPINE [Suspect]
     Indication: PSYCHOTIC DISORDER
     Dosage: 12.5 MG;QOD;ORAL
     Route: 048
     Dates: start: 20040901, end: 20060101

REACTIONS (2)
  - DYSPHAGIA [None]
  - PARKINSON'S DISEASE [None]
